FAERS Safety Report 8457744-4 (Version None)
Quarter: 2012Q2

REPORT INFORMATION
  Report Type: 
  Country: None (occurrence: None)
  Receive Date: 20120618
  Receipt Date: 20120618
  Transmission Date: 20120825
  Serious: Yes (Other)
  Sender: FDA-Public Use
  Company Number: None

PATIENT
  Age: 63 Year
  Sex: Female

DRUGS (2)
  1. LORAZEPAM [Suspect]
     Indication: INSOMNIA
     Dosage: 2 TABLETS AT BEDTIME BY MOUTH
     Dates: start: 20120529
  2. LORAZEPAM [Suspect]
     Indication: INSOMNIA
     Dosage: 2 TABLETS AT BEDTIME BY MOUTH
     Dates: start: 20120521, end: 20120528

REACTIONS (6)
  - NO THERAPEUTIC RESPONSE [None]
  - PSYCHOMOTOR HYPERACTIVITY [None]
  - NONSPECIFIC REACTION [None]
  - NIGHTMARE [None]
  - PRODUCT QUALITY ISSUE [None]
  - INSOMNIA [None]
